FAERS Safety Report 16935813 (Version 1)
Quarter: 2019Q4

REPORT INFORMATION
  Report Type: Spontaneous
  Country: US (occurrence: US)
  Receive Date: 20191018
  Receipt Date: 20191018
  Transmission Date: 20200122
  Serious: Yes (Hospitalization)
  Sender: FDA-Public Use
  Company Number: US-JNJFOC-20191018119

PATIENT
  Age: 63 Year
  Sex: Male

DRUGS (1)
  1. LEVOFLOXACIN. [Suspect]
     Active Substance: LEVOFLOXACIN
     Indication: RESPIRATORY TRACT INFECTION
     Route: 065

REACTIONS (6)
  - Dyspnoea [Unknown]
  - Pleuritic pain [Unknown]
  - Lung opacity [Unknown]
  - Off label use [Unknown]
  - Product use in unapproved indication [Unknown]
  - Haemoptysis [Unknown]
